FAERS Safety Report 11528755 (Version 1)
Quarter: 2015Q3

REPORT INFORMATION
  Report Type: Spontaneous
  Country: US (occurrence: None)
  Receive Date: 20150918
  Receipt Date: 20150918
  Transmission Date: 20151125
  Serious: Yes (Death)
  Sender: FDA-Public Use
  Company Number: None

PATIENT
  Age: 71 Year
  Sex: Male

DRUGS (1)
  1. FIRAZYR [Suspect]
     Active Substance: ICATIBANT ACETATE
     Indication: ENZYME ABNORMALITY
     Dosage: 30MG AS DIRECTED SUBCUTANEOUSLY
     Route: 058
     Dates: start: 20150710

REACTIONS (1)
  - Death [None]

NARRATIVE: CASE EVENT DATE: 20150831
